FAERS Safety Report 5228357-2 (Version None)
Quarter: 2007Q1

REPORT INFORMATION
  Report Type: 
  Country: None (occurrence: None)
  Receive Date: 20070131
  Receipt Date: 20070131
  Transmission Date: 20070707
  Serious: Yes (Other)
  Sender: FDA-Public Use
  Company Number: None

PATIENT
  Sex: Male
  Weight: 81.8743 kg

DRUGS (2)
  1. CIPRO [Suspect]
     Indication: DIVERTICULUM
     Dates: start: 20070109, end: 20070114
  2. FLAGYL [Suspect]
     Dates: start: 20070109, end: 20070114

REACTIONS (5)
  - CRYING [None]
  - DEPRESSION [None]
  - DISORIENTATION [None]
  - FEELING ABNORMAL [None]
  - REFUSAL OF TREATMENT BY PATIENT [None]
